FAERS Safety Report 16087823 (Version 1)
Quarter: 2019Q1

REPORT INFORMATION
  Report Type: Spontaneous
  Country: GB (occurrence: GB)
  Receive Date: 20190319
  Receipt Date: 20190319
  Transmission Date: 20190418
  Serious: Yes (Other)
  Sender: FDA-Public Use
  Company Number: GB-ACCORD-011155

PATIENT
  Sex: Male
  Weight: 92 kg

DRUGS (1)
  1. AMLODIPINE [Suspect]
     Active Substance: AMLODIPINE BESYLATE
     Indication: PRODUCT USED FOR UNKNOWN INDICATION
     Dosage: ALSO RECEIVED (10 MG) FOR 69 DAYS DURATION
     Dates: start: 20110713, end: 20110920

REACTIONS (1)
  - Skin ulcer [Not Recovered/Not Resolved]
